FAERS Safety Report 18818002 (Version 1)
Quarter: 2021Q1

REPORT INFORMATION
  Report Type: Spontaneous
  Country: GB (occurrence: GB)
  Receive Date: 20210202
  Receipt Date: 20210202
  Transmission Date: 20210419
  Serious: Yes (Disabling, Other)
  Sender: FDA-Public Use
  Company Number: GB-SUN PHARMACEUTICAL INDUSTRIES LTD-2021RR-278630

PATIENT
  Age: 68 Year
  Sex: Female
  Weight: 69.85 kg

DRUGS (6)
  1. CIPROFLOXACIN. [Suspect]
     Active Substance: CIPROFLOXACIN
     Indication: CYSTITIS
     Dosage: 1 TABLET TWICE DAILY
     Route: 048
     Dates: start: 20201213, end: 20201217
  2. ACCORD?UK VITAMIN B COMPOUND [Concomitant]
     Indication: PRODUCT USED FOR UNKNOWN INDICATION
     Dosage: UNK
     Route: 065
  3. OPTIFLEX GLUCOSAMINE AND CHONDROITIN [Concomitant]
     Indication: PRODUCT USED FOR UNKNOWN INDICATION
     Dosage: UNK
     Route: 065
  4. VITAMIN D [Concomitant]
     Active Substance: VITAMIN D NOS
     Indication: PRODUCT USED FOR UNKNOWN INDICATION
     Dosage: UNK
     Route: 065
  5. CRANBERRY. [Concomitant]
     Active Substance: CRANBERRY
     Indication: PRODUCT USED FOR UNKNOWN INDICATION
     Dosage: UNK
  6. GLUCOSAMINE [Concomitant]
     Active Substance: GLUCOSAMINE
     Indication: PRODUCT USED FOR UNKNOWN INDICATION
     Dosage: UNK
     Route: 065

REACTIONS (8)
  - Pollakiuria [Unknown]
  - Frequent bowel movements [Unknown]
  - Pelvic pain [Unknown]
  - Bladder pain [Unknown]
  - Vulvovaginal inflammation [Recovered/Resolved with Sequelae]
  - Sensitive skin [Unknown]
  - Gastrointestinal inflammation [Recovered/Resolved with Sequelae]
  - Blood urine present [Unknown]

NARRATIVE: CASE EVENT DATE: 20201215
